FAERS Safety Report 26173243 (Version 1)
Quarter: 2025Q4

REPORT INFORMATION
  Report Type: Spontaneous
  Country: US (occurrence: US)
  Receive Date: 20251218
  Receipt Date: 20251218
  Transmission Date: 20260117
  Serious: Yes (Hospitalization, Other)
  Sender: PROCTER AND GAMBLE
  Company Number: US-PROCTER+GAMBLE-PH25021192

PATIENT
  Age: 31 Year
  Sex: Male

DRUGS (3)
  1. CALCIUM CARBONATE [Suspect]
     Active Substance: CALCIUM CARBONATE
     Indication: Nausea
     Dosage: EVERY 4HR
  2. CALCIUM CARBONATE [Suspect]
     Active Substance: CALCIUM CARBONATE
     Indication: Vomiting
  3. ALCOHOL [Suspect]
     Active Substance: ALCOHOL
     Dosage: 750 MILLILITER, DAILY; FOR 2 MONTHS, WITH HIS LAST DRINK BEING THE DAY OF ADMISSION

REACTIONS (20)
  - Alkalosis [Recovering/Resolving]
  - Alkalosis hypokalaemic [Recovering/Resolving]
  - Acute kidney injury [Recovered/Resolved]
  - Renal impairment [Recovering/Resolving]
  - Alkalosis hypochloraemic [Recovering/Resolving]
  - Hypovolaemia [Recovering/Resolving]
  - Muscle spasms [Unknown]
  - Tachycardia [Recovered/Resolved]
  - Electrocardiogram abnormal [Unknown]
  - Anion gap increased [Recovering/Resolving]
  - Blood bicarbonate increased [Recovering/Resolving]
  - Blood chloride decreased [Recovering/Resolving]
  - Blood creatine increased [Recovering/Resolving]
  - Blood lactic acid increased [Recovered/Resolved]
  - Blood pH increased [Recovering/Resolving]
  - Blood potassium decreased [Recovering/Resolving]
  - Blood sodium decreased [Recovering/Resolving]
  - Blood urea increased [Recovering/Resolving]
  - Drug ineffective for unapproved indication [Unknown]
  - Product use issue [Unknown]
